FAERS Safety Report 9672072 (Version 1)
Quarter: 2013Q4

REPORT INFORMATION
  Report Type: Spontaneous
  Country: US (occurrence: None)
  Receive Date: 20131105
  Receipt Date: 20131105
  Transmission Date: 20140711
  Serious: Yes (Disabling)
  Sender: FDA-Public Use
  Company Number: None

PATIENT
  Age: 63 Year
  Sex: Female
  Weight: 83.92 kg

DRUGS (10)
  1. LEVOFLOXACIN [Suspect]
     Indication: SINUSITIS
     Dosage: 500 MG  1 TAB.  DAILY  BY MOUTH
     Route: 048
     Dates: start: 20131014, end: 20131018
  2. GABAPENTIN [Concomitant]
  3. LEVOTHYROXINE [Concomitant]
  4. LIOTHYRONINE [Concomitant]
  5. OMEPRAZOLE [Concomitant]
  6. PREDNISONE [Concomitant]
  7. PHENOBARBITOL [Concomitant]
  8. ACETOMINAPHEN [Concomitant]
  9. IBUPROFEN [Concomitant]
  10. ASA [Concomitant]

REACTIONS (1)
  - Tendonitis [None]
